FAERS Safety Report 4806755-6 (Version None)
Quarter: 2005Q4

REPORT INFORMATION
  Report Type: 
  Country: None (occurrence: None)
  Receive Date: 20051019
  Receipt Date: 20050929
  Transmission Date: 20060501
  Serious: Yes (Life-Threatening, Hospitalization)
  Sender: FDA-Public Use
  Company Number: FR_051007238

PATIENT
  Age: 60 Year
  Sex: Male

DRUGS (3)
  1. ALIMTA [Suspect]
     Indication: NON-SMALL CELL LUNG CANCER
     Dosage: 500 MG/M2/ 1 OTHER
     Route: 050
  2. FOLIC ACID [Concomitant]
  3. VITAMIN B-12 [Concomitant]

REACTIONS (6)
  - ATRIAL FLUTTER [None]
  - DRUG TOXICITY [None]
  - NEUTROPENIA [None]
  - OVERDOSE [None]
  - SEPTIC SHOCK [None]
  - THROMBOCYTOPENIA [None]
